FAERS Safety Report 4804776-0 (Version None)
Quarter: 2005Q4

REPORT INFORMATION
  Report Type: 
  Country: None (occurrence: None)
  Receive Date: 20051017
  Receipt Date: 20051003
  Transmission Date: 20060501
  Serious: Yes (Death)
  Sender: FDA-Public Use
  Company Number: B0395820A

PATIENT
  Age: 20 Year

DRUGS (4)
  1. WELLBUTRIN SR [Suspect]
     Indication: DRUG USE FOR UNKNOWN INDICATION
     Dosage: ORAL
     Route: 048
  2. BUSPIRONE (FORMULATION UNKNOWN) (BUSPIRONE) [Suspect]
     Indication: DRUG USE FOR UNKNOWN INDICATION
  3. MUSHROOMS (FORULATION UNKNOWN) (MUSHROOMS) [Suspect]
     Indication: DRUG USE FOR UNKNOWN INDICATION
  4. UNKNOWN FORMULATION (UNKNOWN FORMULATION) [Suspect]
     Indication: DRUG USE FOR UNKNOWN INDICATION

REACTIONS (1)
  - DRUG ABUSER [None]
